FAERS Safety Report 4388349-2 (Version None)
Quarter: 2004Q2

REPORT INFORMATION
  Report Type: 
  Country: None (occurrence: None)
  Receive Date: 20040625
  Receipt Date: 20040621
  Transmission Date: 20050107
  Serious: Yes (Other)
  Sender: FDA-Public Use
  Company Number: 2004202624US

PATIENT
  Age: 40 Year
  Sex: Female
  Weight: 108.8 kg

DRUGS (4)
  1. ZYVOX [Suspect]
     Indication: STAPHYLOCOCCAL INFECTION
     Dosage: 600 MG, BID
     Dates: start: 20010901, end: 20011231
  2. SYNTHROID [Concomitant]
  3. CLARITIN-D (PSEUDOEPHEDRINE SULFATE) [Concomitant]
  4. ADVIL [Concomitant]

REACTIONS (2)
  - NEUROPATHY PERIPHERAL [None]
  - PAIN IN EXTREMITY [None]
